FAERS Safety Report 5014901-7 (Version None)
Quarter: 2006Q2

REPORT INFORMATION
  Report Type: 
  Country: None (occurrence: None)
  Receive Date: 20060419
  Receipt Date: 20051103
  Transmission Date: 20061013
  Serious: Yes (Life-Threatening)
  Sender: FDA-Public Use
  Company Number: 2005-04372

PATIENT
  Age: 69 Year
  Sex: Female

DRUGS (1)
  1. FERRLECIT [Suspect]
     Dosage: 125 MG, 1/WEEK, INTRAVENOUS
     Route: 042

REACTIONS (7)
  - CHEST PAIN [None]
  - DYSPNOEA [None]
  - INFUSION RELATED REACTION [None]
  - LIP DISCOLOURATION [None]
  - PAIN IN EXTREMITY [None]
  - PALLOR [None]
  - SYNCOPE [None]
